FAERS Safety Report 24336641 (Version 1)
Quarter: 2024Q3

REPORT INFORMATION
  Report Type: Spontaneous
  Country: JP (occurrence: JP)
  Receive Date: 20240919
  Receipt Date: 20240919
  Transmission Date: 20241016
  Serious: No
  Sender: ROCHE
  Company Number: JP-CHUGAI-2023046607

PATIENT
  Sex: Female

DRUGS (13)
  1. TAMIFLU [Suspect]
     Active Substance: OSELTAMIVIR PHOSPHATE
     Indication: Antiviral prophylaxis
     Dosage: 75 MILLIGRAM, QD
     Route: 048
     Dates: start: 20231129, end: 20231130
  2. TAMIFLU [Suspect]
     Active Substance: OSELTAMIVIR PHOSPHATE
     Indication: Influenza
     Dosage: 75 MILLIGRAM, BID
     Route: 048
     Dates: start: 20231201, end: 20231205
  3. VALPROATE SODIUM [Concomitant]
     Active Substance: VALPROATE SODIUM
     Dosage: 2 T, BID
  4. TEGRETOL [Concomitant]
     Active Substance: CARBAMAZEPINE
     Dosage: 1 T, BID
  5. SODIUM PICOSULFATE [Concomitant]
     Active Substance: SODIUM PICOSULFATE
     Dosage: 3T(MORNING), 2T(EVENING), BID
  6. LEVOTHYROXINE SODIUM [Concomitant]
     Active Substance: LEVOTHYROXINE SODIUM
     Dosage: 2 T, QD
  7. ALLOPURINOL [Concomitant]
     Active Substance: ALLOPURINOL
     Dosage: 1 T, QD
  8. FYCOMPA [Concomitant]
     Active Substance: PERAMPANEL
     Dosage: 3 T, QD
  9. PURSENNID [SENNA ALEXANDRINA LEAF] [Concomitant]
     Dosage: 1 T, QD
  10. LEVETIRACETAM [Concomitant]
     Active Substance: LEVETIRACETAM
     Dosage: 1 T, QD
  11. MYSTAN [Concomitant]
     Active Substance: CLOBAZAM
     Dosage: 1 T, QD
  12. DIAZEPAM [Concomitant]
     Active Substance: DIAZEPAM
     Dosage: 1 DOSAGE FORM, SINGLE
     Dates: start: 20231201, end: 20231201
  13. PHENOBARBITAL SODIUM [Concomitant]
     Active Substance: PHENOBARBITAL SODIUM
     Dosage: 3 UNK
     Dates: start: 20231201, end: 20231201

REACTIONS (1)
  - Influenza [Unknown]
